FAERS Safety Report 6361301-3 (Version None)
Quarter: 2009Q3

REPORT INFORMATION
  Report Type: 
  Country: None (occurrence: None)
  Receive Date: 20090918
  Receipt Date: 20090914
  Transmission Date: 20100115
  Serious: Yes (Death, Life-Threatening, Hospitalization, Congenital Anomaly)
  Sender: FDA-Public Use
  Company Number: A0678471A

PATIENT
  Sex: Male

DRUGS (9)
  1. PAXIL [Suspect]
     Indication: ANXIETY
     Dosage: 30MG PER DAY
     Dates: start: 20011115, end: 20020517
  2. VITAMIN TAB [Concomitant]
     Indication: PREGNANCY
  3. IRON [Concomitant]
  4. BRETHINE [Concomitant]
  5. PROCARDIA [Concomitant]
  6. ZITHROMAX [Concomitant]
     Route: 049
  7. ZOFRAN [Concomitant]
  8. BENADRYL [Concomitant]
  9. SUDAFED 12 HOUR [Concomitant]

REACTIONS (39)
  - ANXIETY [None]
  - AORTIC DISORDER [None]
  - ATELECTASIS [None]
  - ATRIAL SEPTAL DEFECT [None]
  - BREATH SOUNDS ABNORMAL [None]
  - CAPILLARY DISORDER [None]
  - CARDIAC FAILURE [None]
  - CARDIAC FAILURE CONGESTIVE [None]
  - CARDIOVASCULAR DISORDER [None]
  - COARCTATION OF THE AORTA [None]
  - CYANOSIS [None]
  - DEATH OF RELATIVE [None]
  - DEFORMITY [None]
  - DRUG EXPOSURE DURING PREGNANCY [None]
  - EMOTIONAL DISORDER [None]
  - ENDOCARDIAL FIBROELASTOSIS [None]
  - FOETAL DISTRESS SYNDROME [None]
  - HYPOPLASTIC LEFT HEART SYNDROME [None]
  - HYPOTENSION [None]
  - HYPOXIA [None]
  - HYPOXIC ENCEPHALOPATHY [None]
  - INJURY [None]
  - LUNG DISORDER [None]
  - METABOLIC ACIDOSIS [None]
  - NEONATAL ASPHYXIA [None]
  - NERVOUS SYSTEM DISORDER [None]
  - PAIN [None]
  - PATENT DUCTUS ARTERIOSUS [None]
  - PERSISTENT FOETAL CIRCULATION [None]
  - PLEURAL EFFUSION [None]
  - PNEUMONIA ASPIRATION [None]
  - PNEUMONITIS [None]
  - POSTURING [None]
  - RALES [None]
  - RESPIRATORY DISTRESS [None]
  - RESPIRATORY FAILURE [None]
  - SEPSIS [None]
  - USE OF ACCESSORY RESPIRATORY MUSCLES [None]
  - VENTRICULAR HYPOPLASIA [None]
